FAERS Safety Report 17734504 (Version 1)
Quarter: 2020Q2

REPORT INFORMATION
  Report Type: Spontaneous
  Country: NL (occurrence: NL)
  Receive Date: 20200501
  Receipt Date: 20200501
  Transmission Date: 20200714
  Serious: Yes (Other)
  Sender: FDA-Public Use
  Company Number: NL-MYLANLABS-2020M1042250

PATIENT
  Age: 28 Year
  Sex: Male

DRUGS (22)
  1. PREDNISONE. [Suspect]
     Active Substance: PREDNISONE
     Indication: SUSAC^S SYNDROME
  2. METHYLPREDNISOLONE. [Suspect]
     Active Substance: METHYLPREDNISOLONE
     Indication: PYREXIA
  3. METHYLPREDNISOLONE. [Suspect]
     Active Substance: METHYLPREDNISOLONE
     Indication: MALAISE
  4. METHYLPREDNISOLONE. [Suspect]
     Active Substance: METHYLPREDNISOLONE
     Indication: RETINAL ARTERY OCCLUSION
  5. PREDNISONE. [Suspect]
     Active Substance: PREDNISONE
     Indication: VOMITING
     Dosage: UNK UNK, UNKNOWN
     Route: 065
  6. ACETYLSALICYLIC ACID [Suspect]
     Active Substance: ASPIRIN
     Indication: RETINAL ARTERY OCCLUSION
  7. ACETYLSALICYLIC ACID [Suspect]
     Active Substance: ASPIRIN
     Indication: PYREXIA
  8. PREDNISONE. [Suspect]
     Active Substance: PREDNISONE
     Indication: PYREXIA
  9. METHYLPREDNISOLONE. [Suspect]
     Active Substance: METHYLPREDNISOLONE
     Indication: DIZZINESS
     Dosage: UNK UNK, UNKNOWN
     Route: 065
  10. CYCLOPHOSPHAMIDE. [Suspect]
     Active Substance: CYCLOPHOSPHAMIDE
     Indication: MUTISM
     Dosage: 3 COURSES
     Route: 065
  11. ACETYLSALICYLIC ACID [Suspect]
     Active Substance: ASPIRIN
     Indication: VOMITING
  12. PREDNISONE. [Suspect]
     Active Substance: PREDNISONE
     Indication: RETINAL ARTERY OCCLUSION
     Dosage: 60 MG, QD
     Route: 048
  13. PREDNISONE. [Suspect]
     Active Substance: PREDNISONE
     Indication: MALAISE
  14. CYCLOPHOSPHAMIDE. [Suspect]
     Active Substance: CYCLOPHOSPHAMIDE
     Indication: APATHY
  15. ACETYLSALICYLIC ACID [Suspect]
     Active Substance: ASPIRIN
     Indication: VISUAL IMPAIRMENT
     Dosage: UNK
     Route: 065
  16. ACETYLSALICYLIC ACID [Suspect]
     Active Substance: ASPIRIN
     Indication: DIZZINESS
  17. CYCLOPHOSPHAMIDE. [Suspect]
     Active Substance: CYCLOPHOSPHAMIDE
     Indication: SUSAC^S SYNDROME
     Dosage: UNK, UNKNOWN
     Route: 065
  18. ACETYLSALICYLIC ACID [Suspect]
     Active Substance: ASPIRIN
     Indication: MALAISE
  19. PREDNISONE. [Suspect]
     Active Substance: PREDNISONE
     Indication: DIZZINESS
  20. PREDNISONE. [Suspect]
     Active Substance: PREDNISONE
     Indication: VISUAL IMPAIRMENT
  21. METHYLPREDNISOLONE. [Suspect]
     Active Substance: METHYLPREDNISOLONE
     Indication: VOMITING
     Dosage: UNK
     Route: 065
  22. METHYLPREDNISOLONE. [Suspect]
     Active Substance: METHYLPREDNISOLONE
     Indication: VISUAL IMPAIRMENT

REACTIONS (9)
  - Urosepsis [Unknown]
  - Mutism [Recovering/Resolving]
  - Paresis [Recovering/Resolving]
  - Depressed level of consciousness [Recovering/Resolving]
  - Visual impairment [Recovered/Resolved]
  - Off label use [Unknown]
  - Apathy [Recovering/Resolving]
  - Product use in unapproved indication [Unknown]
  - Susac^s syndrome [Unknown]
